FAERS Safety Report 8318504 (Version 8)
Quarter: 2013Q3

REPORT INFORMATION
  Report Type: Report from Study
  Country: JP (occurrence: JP)
  Receive Date: 20120103
  Receipt Date: 20130709
  Transmission Date: 20140515
  Serious: Yes (Death, Hospitalization, Other)
  Sender: FDA-Public Use
  Company Number: JP-BAYER-2011-080387

PATIENT
  Age: 72 Year
  Sex: Male
  Weight: 61.22 kg

DRUGS (36)
  1. NEXAVAR [Suspect]
     Indication: HEPATOCELLULAR CARCINOMA
     Dosage: 200 MG, QD
     Route: 048
     Dates: start: 20100804, end: 20101115
  2. NEXAVAR [Suspect]
     Indication: HEPATOCELLULAR CARCINOMA
     Dosage: 400 MG, QOD
     Route: 048
     Dates: start: 20101207, end: 20110110
  3. NEXAVAR [Suspect]
     Indication: HEPATOCELLULAR CARCINOMA
     Dosage: 400 MG, QOD
     Route: 048
     Dates: start: 20110322, end: 20111031
  4. LASIX [Suspect]
     Dosage: 20 MG, QD
     Route: 048
     Dates: end: 20100913
  5. LASIX [Suspect]
     Dosage: 40 MG, QD
     Route: 048
     Dates: start: 20100914, end: 20100927
  6. LASIX [Suspect]
     Dosage: 60 MG, QD
     Route: 048
     Dates: start: 20100928, end: 20101018
  7. LASIX [Suspect]
     Dosage: 40 MG, QD
     Route: 048
     Dates: start: 20101019, end: 20110111
  8. LASIX [Suspect]
     Dosage: 20 MG, OW
     Route: 042
     Dates: start: 20101101, end: 2010
  9. LASIX [Suspect]
     Dosage: 20 MG, ONCE
     Route: 042
     Dates: start: 20101115, end: 20101115
  10. LASIX [Suspect]
     Dosage: 20 MG, QD
     Route: 048
     Dates: start: 20110114
  11. URSO [Concomitant]
     Dosage: DAILY DOSE 600 MG
     Route: 048
  12. AMARYL [Concomitant]
     Dosage: DAILY DOSE 6 MG
     Route: 048
     Dates: end: 20101018
  13. AMARYL [Concomitant]
     Dosage: DAILY DOSE 3 MG
     Route: 048
     Dates: start: 20101019
  14. AMARYL [Concomitant]
     Dosage: DAILY DOSE 3 MG
     Route: 048
     Dates: start: 20101019
  15. ALDACTONE A [Concomitant]
     Dosage: DAILY DOSE 25 MG
     Route: 048
     Dates: end: 20100913
  16. ALDACTONE A [Concomitant]
     Dosage: DAILY DOSE 50 MG
     Route: 048
     Dates: start: 20100914, end: 20100927
  17. ALDACTONE A [Concomitant]
     Dosage: DAILY DOSE 75 MG
     Route: 048
     Dates: start: 20100928, end: 20101018
  18. ALDACTONE A [Concomitant]
     Dosage: DAILY DOSE 50 MG
     Route: 048
     Dates: start: 20100914, end: 20100927
  19. ALDACTONE A [Concomitant]
     Dosage: DAILY DOSE 50 MG
     Route: 048
     Dates: start: 20101019
  20. LIVACT [Concomitant]
     Dosage: DAILY DOSE 3 DF
     Route: 048
  21. BASEN [Concomitant]
     Dosage: DAILY DOSE 0.9 MG
     Route: 048
  22. GASTER D [Concomitant]
     Dosage: DAILY DOSE 20 MG
     Route: 048
  23. HOCHUUEKKITOU [Concomitant]
     Dosage: DAILY DOSE 3 DF
     Route: 048
     Dates: start: 20100818, end: 20101019
  24. MYSER [Concomitant]
     Dosage: UNK
     Route: 061
     Dates: start: 20100803, end: 20100803
  25. HIRUDOID [Concomitant]
     Dosage: UNK
     Route: 061
     Dates: start: 20100803, end: 20100803
  26. SHAKUYAKUKANZOUTOU [Concomitant]
     Dosage: 1 DF, PRN
     Route: 048
     Dates: start: 20101004, end: 20110204
  27. ALBUMIN [Concomitant]
     Dosage: DAILY DOSE 50 ML
     Route: 042
     Dates: start: 20101101, end: 2010
  28. ALBUMIN [Concomitant]
     Dosage: DAILY DOSE 50 ML
     Route: 042
     Dates: start: 20101115, end: 20101115
  29. NOVORAPID [Concomitant]
     Dosage: DAILY DOSE 18 U
     Route: 058
     Dates: start: 20101119, end: 20101122
  30. NOVORAPID [Concomitant]
     Dosage: DAILY DOSE 24 U
     Route: 058
     Dates: start: 20101123, end: 20101125
  31. NOVORAPID [Concomitant]
     Dosage: DAILY DOSE 30 U
     Route: 058
     Dates: start: 20101126, end: 20101202
  32. NOVORAPID [Concomitant]
     Dosage: DAILY DOSE 42 U
     Route: 058
     Dates: start: 20101203
  33. CRAVIT [Concomitant]
     Indication: INFECTION PROPHYLAXIS
     Dosage: DAILY DOSE 250 MG
     Route: 048
     Dates: start: 20101122, end: 20110218
  34. BIO THREE [CLOSTRID BUTYRICUM,LACTOBAC ACIDOPH,SACCHAROM BOULAR] [Concomitant]
     Dosage: DAILY DOSE 3 DF
     Route: 048
     Dates: start: 20101122
  35. MAGNESIUM OXIDE [Concomitant]
     Dosage: DAILY DOSE 1.5 G
     Route: 048
     Dates: start: 20101122
  36. KANAMYCIN [Concomitant]
     Dosage: DAILY DOSE 750 MG
     Route: 048
     Dates: start: 20110219

REACTIONS (14)
  - Hepatic encephalopathy [Recovering/Resolving]
  - Hepatic encephalopathy [Recovering/Resolving]
  - Hepatic failure [Not Recovered/Not Resolved]
  - Hepatocellular carcinoma [Fatal]
  - Endocarditis [Fatal]
  - Transaminases increased [Recovered/Resolved]
  - Hypertension [Recovered/Resolved]
  - Ascites [Recovered/Resolved]
  - Dysphonia [Not Recovered/Not Resolved]
  - Muscle spasms [Recovered/Resolved]
  - Diabetes mellitus [Recovering/Resolving]
  - Pyrexia [Recovered/Resolved]
  - Hyponatraemia [Recovered/Resolved]
  - Pyrexia [Recovered/Resolved]
